FAERS Safety Report 5093861-7 (Version None)
Quarter: 2006Q3

REPORT INFORMATION
  Report Type: 
  Country: None (occurrence: None)
  Receive Date: 20060831
  Receipt Date: 20060823
  Transmission Date: 20061208
  Serious: Yes (Other)
  Sender: FDA-Public Use
  Company Number: JP-BRISTOL-MYERS SQUIBB COMPANY-13488531

PATIENT
  Age: 66 Year
  Sex: Female

DRUGS (4)
  1. TAXOL [Suspect]
     Indication: BREAST CANCER
     Route: 041
  2. HERCEPTIN [Concomitant]
  3. ENDOXAN [Concomitant]
  4. FARMORUBICIN [Concomitant]

REACTIONS (2)
  - FOLLICULITIS [None]
  - RASH [None]
